FAERS Safety Report 10623495 (Version 1)
Quarter: 2014Q4

REPORT INFORMATION
  Report Type: Report from Study
  Country: BR (occurrence: BR)
  Receive Date: 20141203
  Receipt Date: 20141203
  Transmission Date: 20150529
  Serious: Yes (Hospitalization, Other)
  Sender: FDA-Public Use
  Company Number: PHHY2014BR158038

PATIENT
  Sex: Female

DRUGS (1)
  1. EXELON PATCH [Suspect]
     Active Substance: RIVASTIGMINE
     Indication: DEMENTIA ALZHEIMER^S TYPE
     Dosage: UNK
     Route: 062

REACTIONS (8)
  - Lung infection [Unknown]
  - Dementia Alzheimer^s type [Unknown]
  - Eating disorder [Unknown]
  - Application site hypersensitivity [Unknown]
  - Weight decreased [Unknown]
  - Dehydration [Unknown]
  - Application site erythema [Unknown]
  - Dysphagia [Unknown]
